FAERS Safety Report 4929012-6 (Version None)
Quarter: 2006Q1

REPORT INFORMATION
  Report Type: 
  Country: None (occurrence: None)
  Receive Date: 20060301
  Receipt Date: 20051118
  Transmission Date: 20060701
  Serious: Yes (Other)
  Sender: FDA-Public Use
  Company Number: DE-ROCHE-425262

PATIENT
  Age: 54 Year
  Sex: Female
  Weight: 63 kg

DRUGS (1)
  1. TAMIFLU [Suspect]
     Indication: INFLUENZA
     Route: 048
     Dates: start: 20050307, end: 20050311

REACTIONS (5)
  - BODY TEMPERATURE DECREASED [None]
  - DEPRESSION [None]
  - PANIC ATTACK [None]
  - RESTLESSNESS [None]
  - SLEEP DISORDER [None]
